FAERS Safety Report 21601260 (Version 3)
Quarter: 2023Q1

REPORT INFORMATION
  Report Type: Spontaneous
  Country: CA (occurrence: CA)
  Receive Date: 20221116
  Receipt Date: 20230327
  Transmission Date: 20230417
  Serious: Yes (Other)
  Sender: FDA-Public Use
  Company Number: CA-PFIZER INC-202201156144

PATIENT
  Age: 37 Year
  Sex: Male

DRUGS (3)
  1. ABRILADA [Suspect]
     Active Substance: ADALIMUMAB-AFZB
     Indication: Crohn^s disease
     Dosage: 40 MG, 2X/WEEK, INDUCTION 160 MG WEEK 0, 80 MG WEEK 2 THEN 40 MG EVERY 2 WEEK STARTING WEEK 4
     Route: 058
     Dates: start: 20220922, end: 2022
  2. ABRILADA [Suspect]
     Active Substance: ADALIMUMAB-AFZB
     Dosage: 40MG EVERY WEEK
     Route: 058
     Dates: start: 2022
  3. ABRILADA [Suspect]
     Active Substance: ADALIMUMAB-AFZB
     Dosage: 1 DF, WEEKLY, 1 DOSE EVERY WEEK ALTERNATING 40MG ONE WEEK AND 80MG EVERY OTHER WEEK
     Route: 058
     Dates: start: 202211

REACTIONS (6)
  - Ileal stenosis [Unknown]
  - Drug ineffective [Not Recovered/Not Resolved]
  - Enteritis [Not Recovered/Not Resolved]
  - Abdominal pain [Unknown]
  - Off label use [Unknown]
  - Off label use [Unknown]

NARRATIVE: CASE EVENT DATE: 20220101
